FAERS Safety Report 23027496 (Version 2)
Quarter: 2023Q4

REPORT INFORMATION
  Report Type: Spontaneous
  Country: None (occurrence: US)
  Receive Date: 20231004
  Receipt Date: 20231130
  Transmission Date: 20240110
  Serious: Yes (Disabling)
  Sender: FDA-Public Use
  Company Number: US-Imprimis NJOF, LLC-2146641

PATIENT

DRUGS (1)
  1. MOXIFLOXACIN [Suspect]
     Active Substance: MOXIFLOXACIN
     Route: 047

REACTIONS (1)
  - Iris atrophy [Not Recovered/Not Resolved]
